FAERS Safety Report 25968489 (Version 1)
Quarter: 2025Q4

REPORT INFORMATION
  Report Type: Report from Study
  Country: US (occurrence: US)
  Receive Date: 20251028
  Receipt Date: 20251028
  Transmission Date: 20260117
  Serious: No
  Sender: ACADIA PHARMACEUTICALS
  Company Number: US-ACADIA PHARMACEUTICALS INC.-ACA-2025-PIM-011485

PATIENT
  Sex: Female

DRUGS (5)
  1. NUPLAZID [Suspect]
     Active Substance: PIMAVANSERIN TARTRATE
     Indication: Parkinson^s disease psychosis
     Dosage: 34 MILLIGRAM, TAKE 1 CAPSULE BY MOUTH ONCE DAILY
     Route: 048
     Dates: start: 20250219
  2. CARBIDOPA [Concomitant]
     Active Substance: CARBIDOPA
  3. DULOXETINE [Concomitant]
     Active Substance: DULOXETINE
  4. OMEPRAZOLE [Concomitant]
     Active Substance: OMEPRAZOLE
  5. RYTARY [Concomitant]
     Active Substance: CARBIDOPA\LEVODOPA

REACTIONS (1)
  - Confusional state [Unknown]
